FAERS Safety Report 22038359 (Version 2)
Quarter: 2023Q1

REPORT INFORMATION
  Report Type: Spontaneous
  Country: JP (occurrence: JP)
  Receive Date: 20230227
  Receipt Date: 20230313
  Transmission Date: 20230417
  Serious: Yes (Other)
  Sender: FDA-Public Use
  Company Number: JP-002147023-NVSJ2023JP003766

PATIENT
  Age: 52 Year
  Sex: Male

DRUGS (1)
  1. PAZOPANIB [Suspect]
     Active Substance: PAZOPANIB
     Indication: Alveolar rhabdomyosarcoma
     Dosage: UNK
     Route: 065

REACTIONS (2)
  - Haemorrhagic diathesis [Unknown]
  - Platelet count decreased [Unknown]
